FAERS Safety Report 23888948 (Version 1)
Quarter: 2024Q2

REPORT INFORMATION
  Report Type: Spontaneous
  Country: CA (occurrence: CA)
  Receive Date: 20240523
  Receipt Date: 20240523
  Transmission Date: 20240716
  Serious: Yes (Hospitalization, Other)
  Sender: FDA-Public Use
  Company Number: None

PATIENT
  Age: 52 Year
  Sex: Female

DRUGS (2)
  1. ESCITALOPRAM [Suspect]
     Active Substance: ESCITALOPRAM OXALATE
     Indication: Depression
     Dosage: EVERY 1 DAYS
     Route: 048
  2. ESCITALOPRAM [Suspect]
     Active Substance: ESCITALOPRAM OXALATE
     Indication: Depression
     Dosage: EVERY 1 DAYS
     Route: 048

REACTIONS (5)
  - Drug ineffective [Recovered/Resolved]
  - Alcohol use disorder [Recovered/Resolved]
  - Alcoholic hangover [Recovered/Resolved]
  - Alcoholism [Recovered/Resolved]
  - Weight increased [Recovered/Resolved]
